FAERS Safety Report 9358636 (Version 2)
Quarter: 2013Q4

REPORT INFORMATION
  Report Type: Spontaneous
  Country: US (occurrence: US)
  Receive Date: 20130620
  Receipt Date: 20131216
  Transmission Date: 20140711
  Serious: Yes (Hospitalization)
  Sender: FDA-Public Use
  Company Number: US-B.I. PHARMACEUTICALS,INC./RIDGEFIELD-2013-BI-17208BP

PATIENT
  Sex: Male
  Weight: 110 kg

DRUGS (19)
  1. PRADAXA [Suspect]
     Indication: ANTICOAGULANT THERAPY
     Dosage: 300 MG
     Route: 048
     Dates: start: 20110106, end: 20110614
  2. PRADAXA [Suspect]
     Indication: ATRIAL FIBRILLATION
  3. ASPIRIN [Concomitant]
     Dosage: 80 MG
     Route: 048
     Dates: start: 1991
  4. PLAVIX [Concomitant]
     Dosage: 75 MG
     Dates: start: 1991
  5. LIPITOR [Concomitant]
     Dosage: 80 MG
  6. METOPROLOL [Concomitant]
     Dosage: 50 MG
     Route: 048
  7. SPIRIVA [Concomitant]
  8. UROXATRAL [Concomitant]
     Dosage: 10 MG
  9. COLACE [Concomitant]
     Dosage: 200 MG
     Route: 048
  10. FOSAMAX [Concomitant]
     Dosage: 10 MG
  11. NITROSTAT [Concomitant]
  12. LIDODERM PATCH [Concomitant]
  13. NIASPAN [Concomitant]
     Dosage: 500 MG
  14. ADVAIR [Concomitant]
  15. MULTAQ [Concomitant]
     Dosage: 800 MG
     Route: 048
  16. LASIX [Concomitant]
     Dosage: 40 MG
     Route: 048
  17. K-DUR [Concomitant]
     Route: 048
  18. PROSCAR [Concomitant]
     Dosage: 5 MG
  19. KLONOPIN [Concomitant]
     Route: 048

REACTIONS (2)
  - Gastrointestinal haemorrhage [Unknown]
  - Haemorrhagic anaemia [Unknown]
